FAERS Safety Report 9113056 (Version 2)
Quarter: 2013Q1

REPORT INFORMATION
  Report Type: Spontaneous
  Country: BR (occurrence: BR)
  Receive Date: 20130211
  Receipt Date: 20130319
  Transmission Date: 20140127
  Serious: Yes (Other)
  Sender: FDA-Public Use
  Company Number: PHHY2013BR012861

PATIENT
  Age: 26 Year
  Sex: Female

DRUGS (5)
  1. GILENYA [Suspect]
     Indication: MULTIPLE SCLEROSIS
     Dosage: 0.5 MG, QD
     Route: 048
     Dates: start: 20130125
  2. HARMONET [Concomitant]
     Indication: CONTRACEPTION
     Dosage: 1 DF, QD, 6 YEARS AGO
     Route: 048
  3. OMEPRAZOL [Concomitant]
     Dosage: 1 DF, QD
     Route: 048
  4. VITAMIN D [Concomitant]
     Indication: IMMUNE SYSTEM DISORDER
     Dosage: UNK UKN, QD, 10 DROPS A DAY
     Route: 048
  5. CYMBALTA [Concomitant]
     Indication: FATIGUE
     Dosage: 1 DF, QD

REACTIONS (5)
  - Dysuria [Not Recovered/Not Resolved]
  - Vulvovaginal candidiasis [Recovered/Resolved]
  - Oral candidiasis [Recovered/Resolved]
  - Oral herpes [Recovered/Resolved]
  - Genital herpes [Recovered/Resolved]
